FAERS Safety Report 7729963-3 (Version None)
Quarter: 2011Q3

REPORT INFORMATION
  Report Type: 
  Country: None (occurrence: None)
  Receive Date: 20110906
  Receipt Date: 20110824
  Transmission Date: 20111222
  Serious: Yes (Death, Hospitalization)
  Sender: FDA-Public Use
  Company Number: JP-ROCHE-800211

PATIENT
  Age: 59 Year
  Sex: Male

DRUGS (19)
  1. AVASTIN [Suspect]
     Dosage: NOTE: DOSAGE IS UNCERTAIN.
     Route: 041
     Dates: start: 20081201, end: 20090101
  2. OXALIPLATIN [Concomitant]
     Dosage: NOTE: DOSAGE IS UNCERTAIN.
     Route: 041
     Dates: start: 20080101, end: 20080101
  3. EFUDEX [Concomitant]
     Dosage: ROUTE: INTRAVENOUS DRIP NOTE: DOSAGE IS UNCERTAIN.
     Route: 042
     Dates: start: 20081201, end: 20090101
  4. LEUCOVORIN CALCIUM [Concomitant]
     Dosage: NOTE: DOSAGE IS UNCERTAIN.
     Route: 041
     Dates: start: 20080101, end: 20080101
  5. LEUCOVORIN CALCIUM [Concomitant]
     Dosage: NOTE: DOSAGE IS UNCERTAIN.
     Route: 041
     Dates: start: 20081201, end: 20090101
  6. IRINOTECAN HCL [Concomitant]
     Dosage: NOTE: DOSAGE IS UNCERTAIN.
     Route: 041
     Dates: start: 20081201, end: 20090101
  7. AVASTIN [Suspect]
     Indication: RECTAL CANCER METASTATIC
     Dosage: NOTE: DOSAGE IS UNCERTAIN.
     Route: 041
     Dates: start: 20080201, end: 20080101
  8. EFUDEX [Concomitant]
     Dosage: ROUTE: INTRAVENOUS DRIP NOTE: DOSAGE IS UNCERTAIN.
     Route: 042
     Dates: end: 20080101
  9. EFUDEX [Concomitant]
     Dosage: ROUTE: INTRAVENOUS BOLUS NOTE: DOSAGE IS UNCERTAIN.
     Route: 042
     Dates: start: 20081201, end: 20090101
  10. EFUDEX [Concomitant]
     Dosage: ROUTE: INTRAVENOUS BOLUS NOTE: DOSAGE IS UNCERTAIN.
     Route: 042
     Dates: start: 20090101, end: 20090101
  11. EFUDEX [Concomitant]
     Dosage: ROUTE: INTRAVENOUS DRIP NOTE: DOSAGE IS UNCERTAIN.
     Route: 042
     Dates: start: 20090101, end: 20090101
  12. IRINOTECAN HCL [Concomitant]
     Dosage: NOTE: DOSAGE IS UNCERTAIN.
     Route: 041
     Dates: start: 20090101, end: 20090101
  13. EFUDEX [Concomitant]
     Dosage: ROUTE: INTRAVENOUS BOLUS NOTE: DOSAGE IS UNCERTAIN.
     Route: 042
     Dates: end: 20080101
  14. EFUDEX [Concomitant]
     Dosage: ROUTE: INTRAVENOUS DRIP NOTE: DOSAGE IS UNCERTAIN.
     Route: 042
     Dates: start: 20080101, end: 20080101
  15. LEUCOVORIN CALCIUM [Concomitant]
     Dosage: NOTE: DOSAGE IS UNCERTAIN.
     Route: 041
     Dates: start: 20090101, end: 20090101
  16. OXALIPLATIN [Concomitant]
     Dosage: NOTE: DOSAGE IS UNCERTAIN.
     Route: 041
     Dates: end: 20080101
  17. EFUDEX [Concomitant]
     Dosage: ROUTE: INTRAVENOUS BOLUS NOTE: DOSAGE IS UNCERTAIN.
     Route: 042
     Dates: start: 20080101, end: 20080101
  18. AVASTIN [Suspect]
     Dosage: NOTE: DOSAGE IS UNCERTAIN.
     Route: 041
     Dates: start: 20090101, end: 20090101
  19. LEUCOVORIN CALCIUM [Concomitant]
     Dosage: NOTE: DOSAGE IS UNCERTAIN.
     Route: 041
     Dates: end: 20080101

REACTIONS (3)
  - DISEASE PROGRESSION [None]
  - BONE MARROW FAILURE [None]
  - MECHANICAL ILEUS [None]
